FAERS Safety Report 4447887-4 (Version None)
Quarter: 2004Q3

REPORT INFORMATION
  Report Type: 
  Country: None (occurrence: None)
  Receive Date: 20040813
  Receipt Date: 20040623
  Transmission Date: 20050211
  Serious: No
  Sender: FDA-Public Use
  Company Number: S04-USA-03737-01

PATIENT
  Age: 87 Year
  Sex: Female

DRUGS (12)
  1. NAMENDA [Suspect]
     Indication: DEMENTIA
     Dosage: 15 MG QD PO
     Route: 048
     Dates: start: 20040611, end: 20040617
  2. NAMENDA [Suspect]
     Indication: DEMENTIA
     Dosage: 20 MG QD PO
     Route: 048
     Dates: start: 20040618, end: 20040619
  3. NAMENDA [Suspect]
     Indication: DEMENTIA
     Dosage: 5 MG QD PO
     Route: 048
     Dates: start: 20040528, end: 20040603
  4. NAMENDA [Suspect]
     Indication: DEMENTIA
     Dosage: 10 MG QD PO
     Route: 048
     Dates: start: 20040604, end: 20040610
  5. PROCRIT [Concomitant]
  6. TAMOXIFEN CITRATE [Concomitant]
  7. BEXTRA [Concomitant]
  8. PLAVIX [Concomitant]
  9. ARICEPT [Concomitant]
  10. CALCIUM [Concomitant]
  11. DETROL [Concomitant]
  12. PAROXETINE HCL [Concomitant]

REACTIONS (1)
  - DIPLOPIA [None]
